FAERS Safety Report 9210346 (Version 2)
Quarter: 2013Q2

REPORT INFORMATION
  Report Type: Spontaneous
  Country: FR (occurrence: FR)
  Receive Date: 20130404
  Receipt Date: 20130617
  Transmission Date: 20140414
  Serious: Yes (Hospitalization, Other)
  Sender: FDA-Public Use
  Company Number: FR-UCBSA-082025

PATIENT
  Age: 78 Year
  Sex: Male

DRUGS (27)
  1. CIMZIA [Suspect]
     Indication: RHEUMATOID ARTHRITIS
     Route: 058
     Dates: start: 201008, end: 201210
  2. CIMZIA [Suspect]
     Indication: RHEUMATOID ARTHRITIS
     Dates: start: 20121120, end: 201302
  3. CORTANCYL [Concomitant]
     Dosage: DAILY DOSE: 10 MG
  4. CORTANCYL [Concomitant]
     Dosage: DAILY DOSE: 7.5  MG FOR 15 DAYS
  5. CORTANCYL [Concomitant]
     Dosage: DAILY DOSE: 5 MG
  6. NOVATREX [Concomitant]
     Dosage: DOSE: 2.5 MG, 7 TABLETS WEEKLY, 17.5 MG WEEKLY
  7. SPECIAFOLDINE [Concomitant]
     Dosage: DOSE: 5 MG, 3 TABLETS WEEKLY, 15MG WEEKLY 48 HOURS AFTER METHOOTREXATE
  8. FOSAVANCE [Concomitant]
     Dosage: DOSE: 70 MG WEEKLY
  9. CACIT D3 [Concomitant]
  10. DAFALGAN [Concomitant]
     Dosage: DOSE: 1GM THREE TIMES DAILY AS REQUIRED IF PAIN
  11. PIASCLEDINE [Concomitant]
  12. MOPRAL [Concomitant]
     Dosage: DAILY DOSE: 20 MG
  13. GAVISCON [Concomitant]
     Dosage: DOSE: 3 SACHETS DAILY
  14. DOMPERIDONE [Concomitant]
     Dosage: DOSE: 3 TIMES DAILY
  15. SULFARLEM [Concomitant]
  16. CELLUVISC [Concomitant]
  17. BROMAZEPAM [Concomitant]
  18. AZILECT [Concomitant]
  19. SINEMET [Concomitant]
     Dosage: STRENGTH 150 MG, DAILY DOSE: 450 MG
  20. SINEMET [Concomitant]
  21. UVEDOSE [Concomitant]
     Dosage: DOSE: 1 PHIAL EVERY 3 MONTHS
  22. TRANSIPEG [Concomitant]
     Dosage: DOSE: IF REQUIRED
  23. INEXIUM [Concomitant]
     Dosage: DAILY DOSE: 20 MG
  24. LACRIGEL [Concomitant]
     Dosage: DOSE: 3 TO 4 DROPS DAILY IN BOTH EYES
  25. LACRYVISC [Concomitant]
     Dosage: DOSE: 3 TIMES DAILY IN BOTH EYES
  26. VITAMIN A [Concomitant]
     Dosage: DOSE: ONE DAILY IN RIGHT EYE
  27. STERDEX [Concomitant]
     Dosage: DOSE: ONE DROP DAILY IN RIGHT EYE

REACTIONS (4)
  - Eye infection toxoplasmal [Unknown]
  - Arthralgia [Unknown]
  - Osteoarthritis [Unknown]
  - Rash erythematous [Unknown]
